FAERS Safety Report 20023594 (Version 1)
Quarter: 2021Q4

REPORT INFORMATION
  Report Type: Spontaneous
  Country: CN (occurrence: CN)
  Receive Date: 20211102
  Receipt Date: 20211102
  Transmission Date: 20220304
  Serious: Yes (Death, Hospitalization, Disabling, Other)
  Sender: FDA-Public Use
  Company Number: CN-SA-2021SA357875

PATIENT
  Age: 25 Year
  Sex: Female
  Weight: 55 kg

DRUGS (8)
  1. THYMOGLOBULIN [Suspect]
     Active Substance: LAPINE T-LYMPHOCYTE IMMUNE GLOBULIN
     Indication: Immunosuppressant drug therapy
     Dosage: UNK
     Dates: start: 2019, end: 2019
  2. METHYLPREDNISOLONE [Suspect]
     Active Substance: METHYLPREDNISOLONE
     Indication: Immunosuppressant drug therapy
     Dosage: UNK
     Dates: start: 201905, end: 2019
  3. METHYLPREDNISOLONE [Suspect]
     Active Substance: METHYLPREDNISOLONE
     Indication: Prophylaxis against transplant rejection
     Dosage: UNK
     Dates: start: 2019, end: 2019
  4. METHYLPREDNISOLONE [Suspect]
     Active Substance: METHYLPREDNISOLONE
     Indication: Neuromyelitis optica spectrum disorder
     Dosage: 500 MG PULSE THERAPY
     Dates: start: 2019, end: 2019
  5. TACROLIMUS [Suspect]
     Active Substance: TACROLIMUS
     Indication: Immunosuppressant drug therapy
     Dosage: UNK
     Dates: start: 201905
  6. TACROLIMUS [Suspect]
     Active Substance: TACROLIMUS
     Indication: Neuromyelitis optica spectrum disorder
     Dosage: 0.5 MG, QD
     Dates: start: 2019
  7. MYCOPHENOLATE SODIUM [Suspect]
     Active Substance: MYCOPHENOLATE SODIUM
     Indication: Immunosuppressant drug therapy
     Dosage: ENTERIC COATED TABLET
     Dates: start: 201905, end: 201905
  8. MIZORIBINE [Concomitant]
     Active Substance: MIZORIBINE
     Indication: Prophylaxis against transplant rejection
     Dosage: UNK
     Dates: start: 201905

REACTIONS (18)
  - Neuromyelitis optica spectrum disorder [Fatal]
  - Vision blurred [Fatal]
  - Blindness [Fatal]
  - Hypoaesthesia [Fatal]
  - Pupillary reflex impaired [Fatal]
  - Hyperreflexia [Fatal]
  - Hyperreflexia [Fatal]
  - Extensor plantar response [Fatal]
  - Hiccups [Fatal]
  - Nausea [Fatal]
  - Vomiting [Fatal]
  - Papilloedema [Fatal]
  - Quadriplegia [Fatal]
  - Neurotoxicity [Fatal]
  - Incontinence [Fatal]
  - Pneumonia [Unknown]
  - Pyrexia [Unknown]
  - Pleural effusion [Unknown]

NARRATIVE: CASE EVENT DATE: 20190101
